FAERS Safety Report 6438457-7 (Version None)
Quarter: 2009Q4

REPORT INFORMATION
  Report Type: 
  Country: None (occurrence: None)
  Receive Date: 20091110
  Receipt Date: 20091030
  Transmission Date: 20100525
  Serious: Yes (Other)
  Sender: FDA-Public Use
  Company Number: 2009SP034192

PATIENT
  Age: 67 Year
  Sex: Male

DRUGS (3)
  1. DESLORATADINE [Suspect]
     Indication: PREMEDICATION
     Dosage: 1 DF; ONCE;
     Dates: start: 20091030
  2. REMICADE [Suspect]
     Indication: PSORIASIS
     Dosage: 5 MG/KG; ; IV
     Route: 042
  3. ANTIHYPERTENSIVE MEDICATION [Concomitant]

REACTIONS (5)
  - APNOEA [None]
  - ARRHYTHMIA [None]
  - BLOOD PRESSURE SYSTOLIC DECREASED [None]
  - CYANOSIS [None]
  - INFUSION RELATED REACTION [None]
